FAERS Safety Report 7554269-5 (Version None)
Quarter: 2011Q2

REPORT INFORMATION
  Report Type: 
  Country: None (occurrence: None)
  Receive Date: 20110617
  Receipt Date: 20110609
  Transmission Date: 20111010
  Serious: Yes (Other)
  Sender: FDA-Public Use
  Company Number: IE-US-EMD SERONO, INC.-7036033

PATIENT
  Sex: Female

DRUGS (4)
  1. REBIF [Suspect]
     Dates: end: 20110601
  2. REBIF [Suspect]
     Dates: end: 20101201
  3. REBIF [Suspect]
     Indication: RELAPSING-REMITTING MULTIPLE SCLEROSIS
     Dates: start: 20101026
  4. REBIF [Suspect]
     Dates: start: 20110601

REACTIONS (2)
  - ABDOMINAL EXPLORATION [None]
  - INAPPROPRIATE SCHEDULE OF DRUG ADMINISTRATION [None]
